FAERS Safety Report 18096521 (Version 1)
Quarter: 2020Q3

REPORT INFORMATION
  Report Type: Spontaneous
  Country: FR (occurrence: FR)
  Receive Date: 20200731
  Receipt Date: 20200731
  Transmission Date: 20201103
  Serious: Yes (Hospitalization, Other)
  Sender: FDA-Public Use
  Company Number: FR-AUROBINDO-AUR-APL-2017-07620

PATIENT
  Age: 54 Year
  Sex: Female

DRUGS (10)
  1. CLORAZEPATE [Suspect]
     Active Substance: CLORAZEPATE DIPOTASSIUM
     Indication: PRODUCT USED FOR UNKNOWN INDICATION
     Dosage: 100 MILLIGRAM, ONCE A DAY
     Route: 065
  2. CITALOPRAM [Suspect]
     Active Substance: CITALOPRAM HYDROBROMIDE
     Indication: DEPRESSION
     Dosage: 20 MILLIGRAM, ONCE A DAY
     Route: 065
  3. CITALOPRAM [Suspect]
     Active Substance: CITALOPRAM HYDROBROMIDE
     Indication: MAJOR DEPRESSION
  4. CYAMEMAZINE [Suspect]
     Active Substance: CYAMEMAZINE
     Indication: DEPRESSION
     Dosage: 25 MILLIGRAM, ONCE A DAY
     Route: 065
  5. THIAMINE. [Concomitant]
     Active Substance: THIAMINE
     Indication: PRODUCT USED FOR UNKNOWN INDICATION
     Dosage: 1000 MILLIGRAM, DAILY
     Route: 048
  6. CYAMEMAZINE [Suspect]
     Active Substance: CYAMEMAZINE
     Indication: MAJOR DEPRESSION
  7. CLORAZEPATE [Suspect]
     Active Substance: CLORAZEPATE DIPOTASSIUM
     Dosage: 20 MILLIGRAM, ONCE A DAY
     Route: 065
  8. ACAMPROSATE [Suspect]
     Active Substance: ACAMPROSATE
     Indication: PRODUCT USED FOR UNKNOWN INDICATION
     Dosage: 1332 MILLIGRAM, ONCE A DAY
     Route: 065
  9. NICARDIPINE [Concomitant]
     Active Substance: NICARDIPINE
     Indication: ESSENTIAL HYPERTENSION
     Dosage: 50 MILLIGRAM, ONCE A DAY
     Route: 065
  10. PYRIDOXINE [Concomitant]
     Active Substance: PYRIDOXINE
     Indication: PRODUCT USED FOR UNKNOWN INDICATION
     Dosage: 500 MILLIGRAM, DAILY
     Route: 048

REACTIONS (15)
  - Anxiety [Recovered/Resolved]
  - Catatonia [Recovered/Resolved]
  - Mutism [Recovered/Resolved]
  - Disorientation [Recovered/Resolved]
  - Negativism [Recovered/Resolved]
  - Incoherent [Recovered/Resolved]
  - Visual impairment [Recovered/Resolved]
  - Treatment noncompliance [Recovered/Resolved]
  - Muscle rigidity [Recovered/Resolved]
  - Akinesia [Recovered/Resolved]
  - Patient elopement [Recovered/Resolved]
  - Flight of ideas [Recovered/Resolved]
  - Mental disorder [Recovered/Resolved]
  - Agitation [Recovered/Resolved]
  - Bipolar II disorder [Recovered/Resolved]
